FAERS Safety Report 10197506 (Version 1)
Quarter: 2014Q2

REPORT INFORMATION
  Report Type: Report from Study
  Country: AU (occurrence: AU)
  Receive Date: 20140527
  Receipt Date: 20140527
  Transmission Date: 20141212
  Serious: Yes (Hospitalization)
  Sender: FDA-Public Use
  Company Number: AU-SA-2014SA063216

PATIENT
  Age: 45 Year
  Sex: Female

DRUGS (5)
  1. AUBAGIO [Suspect]
     Indication: MULTIPLE SCLEROSIS
     Route: 048
     Dates: start: 20130510
  2. HYDREA [Concomitant]
  3. WARFARIN [Concomitant]
  4. MICARDIS [Concomitant]
  5. VITAMIN D [Concomitant]

REACTIONS (1)
  - Vertigo [Recovering/Resolving]
